FAERS Safety Report 8085059 (Version 4)
Quarter: 2014Q2

REPORT INFORMATION
  Report Type: Spontaneous
  Country: US (occurrence: US)
  Receive Date: 20110810
  Receipt Date: 20140430
  Transmission Date: 20141212
  Serious: Yes (Death, Hospitalization, Other)
  Sender: FDA-Public Use
  Company Number: US-GILEAD-2011-0042691

PATIENT
  Sex: Female

DRUGS (3)
  1. LETAIRIS [Suspect]
     Indication: PULMONARY HYPERTENSION
     Dosage: 5 MG, UNK
     Route: 048
     Dates: start: 20110728, end: 20110812
  2. LETAIRIS [Suspect]
     Indication: EMBOLISM
  3. REVATIO [Concomitant]

REACTIONS (3)
  - Death [Fatal]
  - Cardiac failure congestive [Unknown]
  - Oedema [Unknown]
